FAERS Safety Report 5316403-7 (Version None)
Quarter: 2007Q2

REPORT INFORMATION
  Report Type: 
  Country: None (occurrence: None)
  Receive Date: 20070504
  Receipt Date: 20070423
  Transmission Date: 20071010
  Serious: Yes (Other)
  Sender: FDA-Public Use
  Company Number: FR-JNJFOC-20070306453

PATIENT
  Age: 43 Year
  Sex: Male
  Weight: 63 kg

DRUGS (9)
  1. REMICADE [Suspect]
     Route: 042
  2. REMICADE [Suspect]
     Route: 042
  3. REMICADE [Suspect]
     Route: 042
  4. REMICADE [Suspect]
     Route: 042
  5. REMICADE [Suspect]
     Route: 042
  6. REMICADE [Suspect]
     Route: 042
  7. REMICADE [Suspect]
     Indication: ANKYLOSING SPONDYLITIS
     Route: 042
  8. FELDENE [Concomitant]
     Indication: ANKYLOSING SPONDYLITIS
  9. DOLIPRANE [Concomitant]
     Indication: ANKYLOSING SPONDYLITIS
     Dosage: 1000 (UNITS UNSPECIFIED) 1 - 4 X DAY

REACTIONS (5)
  - CHEST PAIN [None]
  - DYSPNOEA [None]
  - FLUSHING [None]
  - INFUSION RELATED REACTION [None]
  - MALAISE [None]
